FAERS Safety Report 14330426 (Version 2)
Quarter: 2018Q1

REPORT INFORMATION
  Report Type: Spontaneous
  Country: CH (occurrence: CH)
  Receive Date: 20171227
  Receipt Date: 20180102
  Transmission Date: 20180509
  Serious: Yes (Hospitalization, Other)
  Sender: FDA-Public Use
  Company Number: CH-MYLANLABS-2017M1082270

PATIENT
  Age: 38 Year
  Sex: Male

DRUGS (3)
  1. CLOZAPINE. [Suspect]
     Active Substance: CLOZAPINE
     Dosage: 500 MG, UNK
  2. CLOZAPINE. [Suspect]
     Active Substance: CLOZAPINE
     Indication: SCHIZOPHRENIA
     Dosage: 400 MG, UNK
  3. CLOZAPINE. [Suspect]
     Active Substance: CLOZAPINE
     Dosage: 600 MG, UNK

REACTIONS (4)
  - Schizophrenia [Unknown]
  - Delirium [Unknown]
  - Tachycardia [Unknown]
  - Weight increased [Unknown]
